APPROVED DRUG PRODUCT: NIACIN
Active Ingredient: NIACIN
Strength: 500MG
Dosage Form/Route: TABLET, EXTENDED RELEASE;ORAL
Application: A203578 | Product #001 | TE Code: AB
Applicant: AMNEAL PHARMACEUTICALS
Approved: Jul 24, 2015 | RLD: No | RS: No | Type: RX